FAERS Safety Report 15348342 (Version 1)
Quarter: 2018Q3

REPORT INFORMATION
  Report Type: Spontaneous
  Country: US (occurrence: US)
  Receive Date: 20180829
  Receipt Date: 20180829
  Transmission Date: 20181010
  Serious: No
  Sender: FDA-Public Use
  Company Number: None

PATIENT
  Age: 64 Year
  Sex: Male

DRUGS (2)
  1. ERLEADA [Suspect]
     Active Substance: APALUTAMIDE
     Route: 048
  2. ELIGARD [Concomitant]
     Active Substance: LEUPROLIDE ACETATE

REACTIONS (2)
  - Flushing [None]
  - Hot flush [None]

NARRATIVE: CASE EVENT DATE: 20180828
